FAERS Safety Report 8449813-X (Version None)
Quarter: 2012Q2

REPORT INFORMATION
  Report Type: 
  Country: None (occurrence: None)
  Receive Date: 20120620
  Receipt Date: 20120608
  Transmission Date: 20120825
  Serious: Yes (Hospitalization, Other)
  Sender: FDA-Public Use
  Company Number: US-ELI_LILLY_AND_COMPANY-US201206003657

PATIENT
  Sex: Male
  Weight: 94.785 kg

DRUGS (4)
  1. ZYPREXA [Suspect]
     Dosage: UNK
     Dates: start: 20120301, end: 20120301
  2. ATIVAN [Concomitant]
     Dosage: UNK
     Dates: end: 20120301
  3. HALDOL [Concomitant]
     Dosage: UNK
     Dates: end: 20120301
  4. CLOZARIL [Concomitant]
     Dosage: UNK
     Dates: end: 20120301

REACTIONS (7)
  - HYPERHIDROSIS [None]
  - NEUROLEPTIC MALIGNANT SYNDROME [None]
  - STARING [None]
  - HOSPITALISATION [None]
  - AMNESIA [None]
  - BALANCE DISORDER [None]
  - BLADDER DYSFUNCTION [None]
